FAERS Safety Report 12632192 (Version 2)
Quarter: 2016Q3

REPORT INFORMATION
  Report Type: Spontaneous
  Country: US (occurrence: US)
  Receive Date: 20160808
  Receipt Date: 20160808
  Transmission Date: 20161109
  Serious: No
  Sender: FDA-Public Use
  Company Number: US-BEH-2016062136

PATIENT
  Sex: Female
  Weight: 63 kg

DRUGS (25)
  1. HIZENTRA [Suspect]
     Active Substance: HUMAN IMMUNOGLOBULIN G
     Indication: IMMUNODEFICIENCY COMMON VARIABLE
     Route: 058
     Dates: start: 20120201
  2. ALBUTEROL. [Concomitant]
     Active Substance: ALBUTEROL
  3. CYMBALTA [Concomitant]
     Active Substance: DULOXETINE HYDROCHLORIDE
  4. SPIRIVA [Concomitant]
     Active Substance: TIOTROPIUM BROMIDE MONOHYDRATE
  5. ACIPHEX [Concomitant]
     Active Substance: RABEPRAZOLE SODIUM
  6. CEPHALEXIN. [Concomitant]
     Active Substance: CEPHALEXIN
  7. ADVAIR HFA [Concomitant]
     Active Substance: FLUTICASONE PROPIONATE\SALMETEROL XINAFOATE
  8. MULTIVITAMIN [Concomitant]
     Active Substance: VITAMINS
  9. ZYRTEC [Concomitant]
     Active Substance: CETIRIZINE HYDROCHLORIDE
  10. DIPHENHYDRAMINE. [Concomitant]
     Active Substance: DIPHENHYDRAMINE
  11. DICYCLOMINE [Concomitant]
     Active Substance: DICYCLOMINE HYDROCHLORIDE
  12. CYTOTEC [Concomitant]
     Active Substance: MISOPROSTOL
  13. SEROQUEL [Concomitant]
     Active Substance: QUETIAPINE FUMARATE
  14. BUSPAR [Concomitant]
     Active Substance: BUSPIRONE HYDROCHLORIDE
  15. AMOXICILLIN. [Concomitant]
     Active Substance: AMOXICILLIN
  16. PLAVIX [Concomitant]
     Active Substance: CLOPIDOGREL BISULFATE
  17. EPIPEN [Concomitant]
     Active Substance: EPINEPHRINE
  18. LMX [Concomitant]
     Active Substance: LIDOCAINE
  19. DEXILANT [Concomitant]
     Active Substance: DEXLANSOPRAZOLE
  20. ZYPREXA [Concomitant]
     Active Substance: OLANZAPINE
  21. CLONAZEPAM. [Concomitant]
     Active Substance: CLONAZEPAM
  22. RANITIDINE. [Concomitant]
     Active Substance: RANITIDINE
  23. MUCINEX [Concomitant]
     Active Substance: GUAIFENESIN
  24. LYRICA [Concomitant]
     Active Substance: PREGABALIN
  25. LAMICTAL [Concomitant]
     Active Substance: LAMOTRIGINE

REACTIONS (1)
  - Urinary tract infection [Unknown]
